FAERS Safety Report 25598526 (Version 2)
Quarter: 2025Q3

REPORT INFORMATION
  Report Type: Spontaneous
  Country: EU (occurrence: EU)
  Receive Date: 20250723
  Receipt Date: 20250731
  Transmission Date: 20251020
  Serious: No
  Sender: UCB
  Company Number: EU-UCBSA-2025042262

PATIENT
  Sex: Male

DRUGS (2)
  1. NEUPRO [Suspect]
     Active Substance: ROTIGOTINE
     Indication: Product used for unknown indication
     Dosage: 4 MILLIGRAM, ONCE DAILY (QD)
     Route: 062
  2. NEUPRO [Suspect]
     Active Substance: ROTIGOTINE
     Dosage: 2 MILLIGRAM, ONCE DAILY (QD)
     Route: 062

REACTIONS (4)
  - Product adhesion issue [Unknown]
  - Off label use [Unknown]
  - Overdose [Unknown]
  - Incorrect dose administered [Unknown]
